FAERS Safety Report 7001224-X (Version None)
Quarter: 2010Q3

REPORT INFORMATION
  Report Type: 
  Country: None (occurrence: None)
  Receive Date: 20100920
  Receipt Date: 20100208
  Transmission Date: 20110219
  Serious: No
  Sender: FDA-Public Use
  Company Number: US-ASTRAZENECA-2010SE05712

PATIENT
  Age: 21 Year
  Sex: Male

DRUGS (3)
  1. SEROQUEL [Suspect]
     Route: 048
     Dates: start: 20100125
  2. LAMICTAL [Concomitant]
  3. KEPPRA [Concomitant]

REACTIONS (1)
  - DRUG WITHDRAWAL HEADACHE [None]
